FAERS Safety Report 22160503 (Version 2)
Quarter: 2023Q2

REPORT INFORMATION
  Report Type: Report from Study
  Country: CN (occurrence: CN)
  Receive Date: 20230331
  Receipt Date: 20230407
  Transmission Date: 20230721
  Serious: Yes (Other)
  Sender: FDA-Public Use
  Company Number: CN-TAKEDA-2023TUS011743

PATIENT
  Age: 75 Year
  Sex: Female
  Weight: 46 kg

DRUGS (16)
  1. BRENTUXIMAB VEDOTIN [Suspect]
     Active Substance: BRENTUXIMAB VEDOTIN
     Indication: Non-Hodgkin^s lymphoma
     Dosage: 100 MILLIGRAM, Q3WEEKS
     Route: 041
     Dates: start: 20220825
  2. BRENTUXIMAB VEDOTIN [Suspect]
     Active Substance: BRENTUXIMAB VEDOTIN
     Dosage: 50 MILLIGRAM, Q3WEEKS
     Route: 041
     Dates: start: 20220916
  3. CYCLOPHOSPHAMIDE [Suspect]
     Active Substance: CYCLOPHOSPHAMIDE
     Indication: Lymphoma
     Dosage: 1000 MILLIGRAM, QD
     Route: 042
     Dates: start: 20220825, end: 20220825
  4. CYCLOPHOSPHAMIDE [Suspect]
     Active Substance: CYCLOPHOSPHAMIDE
     Dosage: 1000 MILLIGRAM, QD
     Route: 042
     Dates: start: 20220916, end: 20220916
  5. CYCLOPHOSPHAMIDE [Suspect]
     Active Substance: CYCLOPHOSPHAMIDE
     Dosage: 1000 MILLIGRAM, QD
     Route: 042
     Dates: start: 20221007, end: 20221007
  6. CYCLOPHOSPHAMIDE [Suspect]
     Active Substance: CYCLOPHOSPHAMIDE
     Dosage: 500 MILLIGRAM, QD
     Route: 042
     Dates: start: 20221118, end: 20221118
  7. EPIRUBICIN HYDROCHLORIDE [Suspect]
     Active Substance: EPIRUBICIN HYDROCHLORIDE
     Indication: Lymphoma
     Dosage: 70 MILLIGRAM, QD
     Route: 042
     Dates: start: 20220825, end: 20220825
  8. EPIRUBICIN HYDROCHLORIDE [Suspect]
     Active Substance: EPIRUBICIN HYDROCHLORIDE
     Dosage: 70 MILLIGRAM, QD
     Route: 042
     Dates: start: 20220916, end: 20220916
  9. EPIRUBICIN HYDROCHLORIDE [Suspect]
     Active Substance: EPIRUBICIN HYDROCHLORIDE
     Dosage: 70 MILLIGRAM, QD
     Route: 042
     Dates: start: 20221007, end: 20221007
  10. EPIRUBICIN HYDROCHLORIDE [Suspect]
     Active Substance: EPIRUBICIN HYDROCHLORIDE
     Dosage: 50 MILLIGRAM, QD
     Route: 042
     Dates: start: 20221118, end: 20221118
  11. PREDNISONE [Suspect]
     Active Substance: PREDNISONE
     Indication: Lymphoma
     Dosage: 80 MILLIGRAM, QD
     Route: 048
     Dates: start: 20220825, end: 20220829
  12. PREDNISONE [Suspect]
     Active Substance: PREDNISONE
     Dosage: 80 MILLIGRAM, QD
     Route: 048
     Dates: start: 20220916, end: 20220920
  13. PREDNISONE [Suspect]
     Active Substance: PREDNISONE
     Dosage: 80 MILLIGRAM, QD
     Route: 048
     Dates: start: 20221007, end: 20221011
  14. TUCIDINOSTAT [Suspect]
     Active Substance: TUCIDINOSTAT
     Indication: Lymphoma
     Dosage: 20 MILLIGRAM, 2/WEEK
     Route: 048
     Dates: start: 20221118
  15. METFORMIN [Concomitant]
     Active Substance: METFORMIN HYDROCHLORIDE
     Indication: Diabetes mellitus
     Dosage: 0.5 GRAM, QD
     Route: 048
  16. AMLODIPINE BESYLATE [Concomitant]
     Active Substance: AMLODIPINE BESYLATE
     Indication: Hypertension
     Dosage: 5 MILLIGRAM, QD
     Route: 048

REACTIONS (2)
  - Myelosuppression [Not Recovered/Not Resolved]
  - Off label use [Unknown]

NARRATIVE: CASE EVENT DATE: 20220825
